FAERS Safety Report 20358398 (Version 1)
Quarter: 2022Q1

REPORT INFORMATION
  Report Type: Spontaneous
  Country: FR (occurrence: FR)
  Receive Date: 20220120
  Receipt Date: 20220120
  Transmission Date: 20220424
  Serious: Yes (Hospitalization, Other)
  Sender: FDA-Public Use
  Company Number: None

PATIENT
  Age: 79 Year
  Sex: Male
  Weight: 86 kg

DRUGS (4)
  1. OFIRMEV [Suspect]
     Active Substance: ACETAMINOPHEN
     Indication: Pain
     Dosage: 10 MILLIGRAM PER MILLILITRE
     Route: 040
     Dates: start: 20210927, end: 20210927
  2. CARBOCAINE [Suspect]
     Active Substance: MEPIVACAINE HYDROCHLORIDE
     Indication: Anaesthesia
     Dosage: 20 MILLIGRAM PER MILLILITRE
     Route: 053
     Dates: start: 20210927, end: 20210927
  3. DROPERIDOL [Suspect]
     Active Substance: DROPERIDOL
     Indication: Prophylaxis of nausea and vomiting
     Dosage: 1.25 MILLIGRAM PER MILLILITRE
     Route: 040
     Dates: start: 20210927, end: 20210927
  4. NICARDIPINE [Suspect]
     Active Substance: NICARDIPINE
     Indication: Postoperative hypertension
     Dosage: 1 MILLIGRAM PER MILLILITRE
     Route: 040
     Dates: start: 20210927, end: 20210927

REACTIONS (1)
  - Pancreatitis [Recovered/Resolved]

NARRATIVE: CASE EVENT DATE: 20210928
